FAERS Safety Report 9288418 (Version 3)
Quarter: 2013Q2

REPORT INFORMATION
  Report Type: Spontaneous
  Country: SE (occurrence: SE)
  Receive Date: 20130514
  Receipt Date: 20130523
  Transmission Date: 20140414
  Serious: Yes (Hospitalization)
  Sender: FDA-Public Use
  Company Number: SE-PFIZER INC-2012282543

PATIENT
  Age: 77 Year
  Sex: Male

DRUGS (12)
  1. TRIATEC [Suspect]
     Dosage: UNK
     Route: 065
     Dates: start: 20120911, end: 20120911
  2. MORPHINE SULFATE [Suspect]
     Indication: PREMEDICATION
     Dosage: UNK
     Route: 065
     Dates: start: 20120911
  3. INSULATARD [Concomitant]
     Dosage: UNK
  4. OMEPRAZOLE [Concomitant]
     Dosage: UNK
  5. FELODIPINE [Concomitant]
     Dosage: UNK
  6. FOLACIN [Concomitant]
     Dosage: UNK
  7. BEHEPAN [Concomitant]
     Dosage: UNK
  8. DUROFERON [Concomitant]
     Dosage: UNK
  9. FURIX [Concomitant]
     Dosage: UNK
  10. EMCONCOR [Concomitant]
     Dosage: UNK
  11. IMDUR [Concomitant]
     Dosage: UNK
  12. STESOLID [Concomitant]
     Indication: PREMEDICATION
     Dosage: UNK
     Dates: start: 20120911

REACTIONS (2)
  - Angioedema [Recovered/Resolved]
  - Hypersensitivity [Unknown]
